FAERS Safety Report 17843999 (Version 1)
Quarter: 2020Q2

REPORT INFORMATION
  Report Type: Spontaneous
  Country: FR (occurrence: FR)
  Receive Date: 20200601
  Receipt Date: 20200601
  Transmission Date: 20200714
  Serious: Yes (Other)
  Sender: FDA-Public Use
  Company Number: FR-CELLTRION INC.-2020FR022687

PATIENT

DRUGS (2)
  1. RITUXIMAB (UNKNOWN) [Suspect]
     Active Substance: RITUXIMAB
     Indication: IMMUNE THROMBOCYTOPENIA
     Dosage: ONE COURSE OF THERAPY
     Route: 041
  2. AZATHIOPRINE. [Suspect]
     Active Substance: AZATHIOPRINE
     Indication: IMMUNE THROMBOCYTOPENIA
     Route: 065

REACTIONS (2)
  - Off label use [Unknown]
  - Lung disorder [Recovered/Resolved]
